FAERS Safety Report 20489407 (Version 1)
Quarter: 2022Q1

REPORT INFORMATION
  Report Type: Spontaneous
  Country: US (occurrence: None)
  Receive Date: 20220217
  Receipt Date: 20220217
  Transmission Date: 20220423
  Serious: Yes (Disabling)
  Sender: FDA-Public Use
  Company Number: None

PATIENT
  Age: 26 Year
  Sex: Female
  Weight: 94.05 kg

DRUGS (1)
  1. CLOBETASOL PROPIONATE [Suspect]
     Active Substance: CLOBETASOL PROPIONATE
     Indication: Eczema
     Dates: start: 20211001, end: 20211217

REACTIONS (5)
  - Topical steroid withdrawal reaction [None]
  - Skin burning sensation [None]
  - Pruritus [None]
  - Pain of skin [None]
  - Insomnia [None]

NARRATIVE: CASE EVENT DATE: 20220119
